FAERS Safety Report 20043534 (Version 2)
Quarter: 2021Q4

REPORT INFORMATION
  Report Type: Spontaneous
  Country: IN (occurrence: IN)
  Receive Date: 20211108
  Receipt Date: 20211125
  Transmission Date: 20220303
  Serious: Yes (Hospitalization)
  Sender: FDA-Public Use
  Company Number: IN-TORRENT-00002941

PATIENT
  Age: 46 Year
  Sex: Male

DRUGS (14)
  1. ESOMEPRAZOLE [Suspect]
     Active Substance: ESOMEPRAZOLE
     Indication: Product used for unknown indication
     Dosage: BD
     Route: 042
  2. DICLOFENAC [Concomitant]
     Active Substance: DICLOFENAC
     Indication: Product used for unknown indication
     Dosage: UNKNOWN
  3. Dynapar [Concomitant]
     Indication: Product used for unknown indication
     Dosage: TDS (3 TIMES A DAY) IN NS
     Route: 042
  4. METOCLOPRAMIDE HYDROCHLORIDE [Concomitant]
     Active Substance: METOCLOPRAMIDE HYDROCHLORIDE
     Indication: Product used for unknown indication
     Dosage: BD
     Route: 042
  5. CEFOPERAZONE SODIUM\SULBACTAM SODIUM [Concomitant]
     Active Substance: CEFOPERAZONE SODIUM\SULBACTAM SODIUM
     Indication: Product used for unknown indication
     Dosage: 3 GM BD
  6. NS/RL [Concomitant]
     Indication: Product used for unknown indication
     Route: 042
  7. ONDANSETRON HYDROCHLORIDE [Concomitant]
     Active Substance: ONDANSETRON HYDROCHLORIDE
     Indication: Product used for unknown indication
     Dosage: STAT
     Route: 042
  8. RAZO [Concomitant]
     Indication: Product used for unknown indication
     Dosage: BD
     Route: 042
  9. DEXTROSE [Concomitant]
     Active Substance: DEXTROSE
     Indication: Product used for unknown indication
     Dosage: STAT
     Route: 042
  10. NEOMOL [Concomitant]
     Indication: Product used for unknown indication
     Dosage: STAT
     Route: 042
  11. CLONAZEPAM [Concomitant]
     Active Substance: CLONAZEPAM
     Indication: Product used for unknown indication
     Dosage: AT NIGHT
  12. FLUDAC [Concomitant]
     Indication: Product used for unknown indication
     Dosage: 1-0-1, WITHOUT MEAL
  13. Panlipase [Concomitant]
     Indication: Product used for unknown indication
     Dosage: 2500 IU, 1-1-1 WITHOUT MEAL
  14. MINERALS\VITAMINS [Concomitant]
     Active Substance: MINERALS\VITAMINS
     Indication: Product used for unknown indication
     Dosage: 1-0-0
     Route: 065

REACTIONS (1)
  - Hypoglycaemia [Recovered/Resolved]

NARRATIVE: CASE EVENT DATE: 20211025
